FAERS Safety Report 21333093 (Version 2)
Quarter: 2022Q4

REPORT INFORMATION
  Report Type: Report from Study
  Country: GB (occurrence: GB)
  Receive Date: 20220914
  Receipt Date: 20221025
  Transmission Date: 20230112
  Serious: Yes (Hospitalization, Other)
  Sender: FDA-Public Use
  Company Number: GB-GLAXOSMITHKLINE-GB2021EME229754

PATIENT

DRUGS (2)
  1. NIRAPARIB [Suspect]
     Active Substance: NIRAPARIB
     Indication: Neoplasm malignant
     Dosage: 100 MG
     Dates: end: 202202
  2. NIRAPARIB [Suspect]
     Active Substance: NIRAPARIB
     Dosage: UNK

REACTIONS (11)
  - Anaemia [Unknown]
  - Dysuria [Unknown]
  - Coronavirus infection [Unknown]
  - Pollakiuria [Unknown]
  - Malignant neoplasm progression [Unknown]
  - Nausea [Not Recovered/Not Resolved]
  - Urinary tract infection [Unknown]
  - Palpitations [Unknown]
  - Platelet count decreased [Unknown]
  - Haemoglobin decreased [Unknown]
  - Pain [Unknown]
